FAERS Safety Report 13636536 (Version 1)
Quarter: 2017Q2

REPORT INFORMATION
  Report Type: Spontaneous
  Country: US (occurrence: US)
  Receive Date: 20170609
  Receipt Date: 20170609
  Transmission Date: 20170830
  Serious: Yes (Life-Threatening, Hospitalization, Other)
  Sender: FDA-Public Use
  Company Number: US-009507513-1706USA001900

PATIENT
  Age: 62 Year
  Sex: Female
  Weight: 96.2 kg

DRUGS (2)
  1. DEXAMETHASONE. [Suspect]
     Active Substance: DEXAMETHASONE
     Indication: PLASMA CELL MYELOMA
     Dosage: 20 MG, WEEKLY FOR 3 WEEKS THEN 1 WEEK OFF
     Route: 048
     Dates: start: 20170111
  2. NINLARO [Suspect]
     Active Substance: IXAZOMIB
     Indication: PLASMA CELL MYELOMA
     Dosage: TAKE 3 MG ONCE A WEEK. FOR 3 WEEKS THEN 1 WEEK OFF
     Route: 048
     Dates: start: 20170111

REACTIONS (2)
  - Pneumonia [Recovered/Resolved]
  - Acute respiratory failure [Recovered/Resolved]

NARRATIVE: CASE EVENT DATE: 20170306
